FAERS Safety Report 4563692-2 (Version None)
Quarter: 2005Q1

REPORT INFORMATION
  Report Type: 
  Country: None (occurrence: None)
  Receive Date: 20050125
  Receipt Date: 20050111
  Transmission Date: 20050727
  Serious: Yes (Hospitalization)
  Sender: FDA-Public Use
  Company Number: 2005011962

PATIENT
  Age: 79 Year
  Sex: Female

DRUGS (3)
  1. CELEBREX [Suspect]
     Indication: ARTHRALGIA
     Dosage: 400 MG (200 MG, 2 IN 1 D), ORAL
     Route: 048
  2. BEXTRA [Suspect]
     Indication: BACK PAIN
     Dosage: 1 IN 1 D, ORAL
     Route: 048
  3. VALORON N (TILIDINE, NALOXONE) [Suspect]
     Indication: PAIN
     Dosage: 100 MG, ORAL
     Route: 048

REACTIONS (8)
  - CARDIAC DISORDER [None]
  - CHEST PAIN [None]
  - CYSTITIS [None]
  - DYSPNOEA [None]
  - HIP ARTHROPLASTY [None]
  - KNEE ARTHROPLASTY [None]
  - NEUROGENIC BLADDER [None]
  - URINARY INCONTINENCE [None]
